FAERS Safety Report 9771257 (Version 1)
Quarter: 2013Q4

REPORT INFORMATION
  Report Type: Spontaneous
  Country: US (occurrence: US)
  Receive Date: 20131218
  Receipt Date: 20131218
  Transmission Date: 20140711
  Serious: Yes (Hospitalization)
  Sender: FDA-Public Use
  Company Number: US-RB-061534-13

PATIENT
  Sex: Female

DRUGS (4)
  1. SUBOXONE FILM [Suspect]
     Indication: DRUG DEPENDENCE
     Dosage: SUBOXONE FILM; DOSING DETAILS UNKNOWN; TAKING DAILY
     Route: 060
  2. KLONOPIN [Suspect]
     Indication: ANXIETY
     Dosage: DOSING DETAILS UNKNOWN
     Route: 048
     Dates: end: 201310
  3. TRAZODONE [Concomitant]
     Indication: INSOMNIA
     Dosage: DOSING DETAILS UNKNOWN
     Route: 048
  4. TYLENOL [Concomitant]
     Indication: PAIN
     Dosage: DOSING DETAILS UNKNOWN
     Route: 048

REACTIONS (2)
  - Pneumonia [Recovered/Resolved]
  - Anxiety [Not Recovered/Not Resolved]
